FAERS Safety Report 6515327-7 (Version None)
Quarter: 2009Q4

REPORT INFORMATION
  Report Type: 
  Country: None (occurrence: None)
  Receive Date: 20091223
  Receipt Date: 20091208
  Transmission Date: 20100525
  Serious: Yes (Hospitalization)
  Sender: FDA-Public Use
  Company Number: US-MYLANLABS-2009S1021024

PATIENT
  Age: 38 Year
  Sex: Male

DRUGS (4)
  1. NEORAL [Suspect]
     Indication: IMMUNOSUPPRESSION
     Dosage: 125MG TWICE DAILY
     Dates: start: 20040801
  2. MYCOPHENOLATE MOFETIL [Suspect]
     Indication: IMMUNOSUPPRESSION
     Dosage: 500MG TWICE DAILY
     Dates: start: 20040801, end: 20070101
  3. EVEROLIMUS [Suspect]
     Indication: IMMUNOSUPPRESSION
     Dosage: 0.75MG [FREQUENCY NOT STATED]
     Dates: start: 20051201
  4. PREDNISOLONE [Suspect]
     Indication: IMMUNOSUPPRESSION
     Dosage: 7.5MG [FREQUENCY NOT STATED]
     Dates: start: 20040801

REACTIONS (4)
  - BILE DUCT OBSTRUCTION [None]
  - CYTOMEGALOVIRUS INFECTION [None]
  - PANCREATITIS ACUTE [None]
  - PAPILLITIS [None]
